FAERS Safety Report 5390410-0 (Version None)
Quarter: 2007Q3

REPORT INFORMATION
  Report Type: 
  Country: None (occurrence: None)
  Receive Date: 20070718
  Receipt Date: 20060630
  Transmission Date: 20080115
  Serious: No
  Sender: FDA-Public Use
  Company Number: US-KINGPHARMUSA00001-K200600860

PATIENT

DRUGS (8)
  1. LEVOXYL [Suspect]
     Indication: HYPOTHYROIDISM
     Dosage: 50 MCG, QD
     Route: 048
     Dates: start: 19990101, end: 20060629
  2. LEVOXYL [Suspect]
     Dosage: 50 MCG, QD
     Dates: start: 20060630
  3. EVISTA [Concomitant]
     Indication: OSTEOPOROSIS
     Dosage: 60 MG, QD
     Route: 048
     Dates: start: 19990101
  4. COLCHICINE [Concomitant]
     Indication: CHONDROCALCINOSIS PYROPHOSPHATE
     Dosage: .6 MG, QD
     Route: 048
  5. VITAMIN A, VITAMIN C AND LUTEIN [Concomitant]
     Indication: MACULAR DEGENERATION
     Dosage: 2 TABLETS, QD
     Route: 048
     Dates: start: 20040101
  6. CALCIUM WITH VITAMIN D [Concomitant]
     Indication: OSTEOPOROSIS
     Dosage: 500 MG, BID
     Route: 048
     Dates: start: 19990101
  7. ACIPHEX [Concomitant]
     Indication: GASTROOESOPHAGEAL REFLUX DISEASE
     Dosage: 20 MG, QD
     Route: 048
     Dates: start: 19990101
  8. ZYRTEC [Concomitant]
     Indication: HYPERSENSITIVITY
     Dosage: 10 MG, QD
     Route: 048
     Dates: start: 19990101

REACTIONS (3)
  - HYPERHIDROSIS [None]
  - NAUSEA [None]
  - TEMPERATURE INTOLERANCE [None]
